FAERS Safety Report 6679745-9 (Version None)
Quarter: 2010Q2

REPORT INFORMATION
  Report Type: 
  Country: None (occurrence: None)
  Receive Date: 20100413
  Receipt Date: 20100406
  Transmission Date: 20101027
  Serious: Yes (Hospitalization)
  Sender: FDA-Public Use
  Company Number: SE-BRISTOL-MYERS SQUIBB COMPANY-14754402

PATIENT
  Age: 40 Year
  Sex: Male

DRUGS (2)
  1. EFAVIRENZ TABS 600 MG [Suspect]
     Indication: ASYMPTOMATIC HIV INFECTION
     Route: 048
     Dates: start: 20090422, end: 20090508
  2. TRUVADA [Suspect]
     Dosage: 1DF-200-245 MG 22APR-8MAY09 (17D) 13MAY09-CONT TABS
     Route: 048
     Dates: start: 20090422

REACTIONS (5)
  - CARPAL TUNNEL SYNDROME [None]
  - FATIGUE [None]
  - PAIN IN EXTREMITY [None]
  - PYREXIA [None]
  - RASH [None]
